FAERS Safety Report 7805123-2 (Version None)
Quarter: 2011Q4

REPORT INFORMATION
  Report Type: 
  Country: None (occurrence: None)
  Receive Date: 20111010
  Receipt Date: 20111006
  Transmission Date: 20120403
  Serious: Yes (Hospitalization)
  Sender: FDA-Public Use
  Company Number: PHHO2011KR13087

PATIENT
  Sex: Male
  Weight: 69 kg

DRUGS (1)
  1. AFINITOR [Suspect]
     Indication: T-CELL LYMPHOMA
     Dosage: 5 MG, QD
     Route: 048
     Dates: start: 20110722, end: 20110818

REACTIONS (2)
  - FEBRILE NEUTROPENIA [None]
  - PNEUMONIA [None]
